FAERS Safety Report 14517049 (Version 1)
Quarter: 2018Q1

REPORT INFORMATION
  Report Type: Report from Study
  Country: US (occurrence: US)
  Receive Date: 20180212
  Receipt Date: 20180212
  Transmission Date: 20180509
  Serious: Yes (Other)
  Sender: FDA-Public Use
  Company Number: US-AMGEN-USASL2018018165

PATIENT
  Age: 66 Year
  Sex: Female

DRUGS (1)
  1. ENBREL [Suspect]
     Active Substance: ETANERCEPT
     Indication: RHEUMATOID ARTHRITIS
     Dosage: 50 MG, QWK
     Route: 065

REACTIONS (8)
  - Dry mouth [Unknown]
  - Pneumonia [Unknown]
  - Alopecia [Unknown]
  - Arthritis [Unknown]
  - Dry throat [Unknown]
  - Palpitations [Unknown]
  - Abdominal pain upper [Unknown]
  - Ear pruritus [Unknown]

NARRATIVE: CASE EVENT DATE: 2017
